FAERS Safety Report 23724286 (Version 2)
Quarter: 2024Q2

REPORT INFORMATION
  Report Type: Spontaneous
  Country: US (occurrence: US)
  Receive Date: 20240409
  Receipt Date: 20240517
  Transmission Date: 20240716
  Serious: Yes (Life-Threatening, Hospitalization, Other)
  Sender: FDA-Public Use
  Company Number: US-009507513-2404USA001179

PATIENT
  Age: 62 Year
  Sex: Female

DRUGS (2)
  1. KEYTRUDA [Suspect]
     Active Substance: PEMBROLIZUMAB
     Indication: Endometrial adenocarcinoma
     Dosage: UNK
  2. CARBOPLATIN [Suspect]
     Active Substance: CARBOPLATIN
     Indication: Endometrial adenocarcinoma
     Dosage: UNK

REACTIONS (5)
  - Immune-mediated myocarditis [Unknown]
  - Immune-mediated myositis [Unknown]
  - Immune-mediated myasthenia gravis [Unknown]
  - Respiratory distress [Unknown]
  - Product use issue [Unknown]
